FAERS Safety Report 24910801 (Version 1)
Quarter: 2025Q1

REPORT INFORMATION
  Report Type: Spontaneous
  Country: US (occurrence: US)
  Receive Date: 20250131
  Receipt Date: 20250131
  Transmission Date: 20250408
  Serious: No
  Sender: BAUSCH AND LOMB
  Company Number: US-BAUSCH-BL-2025-001199

PATIENT
  Sex: Female

DRUGS (3)
  1. TRULANCE [Suspect]
     Active Substance: PLECANATIDE
     Indication: Constipation
     Route: 048
     Dates: start: 202410
  2. TRULANCE [Suspect]
     Active Substance: PLECANATIDE
     Indication: Irritable bowel syndrome
  3. TRULANCE [Suspect]
     Active Substance: PLECANATIDE
     Indication: Off label use

REACTIONS (4)
  - Abdominal pain upper [Unknown]
  - Weight increased [Unknown]
  - Nausea [Unknown]
  - Product use in unapproved indication [Unknown]
